FAERS Safety Report 13192962 (Version 1)
Quarter: 2017Q1

REPORT INFORMATION
  Report Type: Spontaneous
  Country: US (occurrence: US)
  Receive Date: 20170207
  Receipt Date: 20170207
  Transmission Date: 20170428
  Serious: No
  Sender: FDA-Public Use
  Company Number: US-GLAXOSMITHKLINE-US2017015975

PATIENT
  Age: 58 Year
  Sex: Male

DRUGS (1)
  1. NICODERM CQ [Suspect]
     Active Substance: NICOTINE
     Indication: SMOKING CESSATION THERAPY
     Dosage: UNK
     Dates: start: 20170131, end: 20170202

REACTIONS (4)
  - Nicotine dependence [Not Recovered/Not Resolved]
  - Stress [Not Recovered/Not Resolved]
  - Expired product administered [Unknown]
  - Inappropriate schedule of drug administration [Unknown]
